FAERS Safety Report 8237643-3 (Version None)
Quarter: 2012Q1

REPORT INFORMATION
  Report Type: 
  Country: None (occurrence: None)
  Receive Date: 20120327
  Receipt Date: 20120320
  Transmission Date: 20120608
  Serious: Yes (Life-Threatening)
  Sender: FDA-Public Use
  Company Number: RU-TEVA-325836USA

PATIENT
  Sex: Female
  Weight: 100 kg

DRUGS (2)
  1. TREANDA [Suspect]
     Indication: B-CELL LYMPHOMA
     Dosage: 150 MILLIGRAM;
     Route: 042
     Dates: start: 20120219, end: 20120220
  2. RITUXIMAB [Concomitant]
     Indication: B-CELL LYMPHOMA
     Dosage: 1000 MILLIGRAM;
     Route: 042
     Dates: start: 20120219, end: 20120220

REACTIONS (3)
  - BLOOD PRESSURE DECREASED [None]
  - BRADYCARDIA [None]
  - TRANSIENT ISCHAEMIC ATTACK [None]
